FAERS Safety Report 9868481 (Version 1)
Quarter: 2014Q1

REPORT INFORMATION
  Report Type: Spontaneous
  Country: FR (occurrence: FR)
  Receive Date: 20140204
  Receipt Date: 20140204
  Transmission Date: 20141002
  Serious: Yes (Death)
  Sender: FDA-Public Use
  Company Number: FR-PFIZER INC-2014031324

PATIENT
  Age: 59 Year
  Sex: Male

DRUGS (3)
  1. CORDARONE [Suspect]
     Indication: ARRHYTHMIA
     Dosage: UNK
     Route: 048
     Dates: start: 20131120
  2. PRADAXA [Interacting]
     Indication: ATRIAL FIBRILLATION
     Dosage: 110 MG, TWICE DAILY
     Route: 048
     Dates: start: 20131120, end: 201311
  3. TRINITRINE [Concomitant]
     Indication: CHEST PAIN
     Dosage: UNK
     Dates: start: 201311, end: 201311

REACTIONS (2)
  - Drug interaction [Fatal]
  - Rectal haemorrhage [Fatal]
